FAERS Safety Report 9246277 (Version 1)
Quarter: 2013Q2

REPORT INFORMATION
  Report Type: Spontaneous
  Country: CH (occurrence: CH)
  Receive Date: 20130422
  Receipt Date: 20130422
  Transmission Date: 20140414
  Serious: Yes (Hospitalization)
  Sender: FDA-Public Use
  Company Number: CH-BRISTOL-MYERS SQUIBB COMPANY-17239484

PATIENT
  Age: 59 Year
  Sex: Female
  Weight: 54 kg

DRUGS (2)
  1. YERVOY [Suspect]
     Indication: MALIGNANT MELANOMA
     Route: 041
     Dates: start: 20121105, end: 20121127
  2. GINKGO BILOBA [Concomitant]
     Route: 048
     Dates: start: 20121125

REACTIONS (2)
  - Colitis ulcerative [Recovering/Resolving]
  - Anaemia [Recovering/Resolving]
